FAERS Safety Report 5076547-4 (Version None)
Quarter: 2006Q3

REPORT INFORMATION
  Report Type: 
  Country: None (occurrence: None)
  Receive Date: 20060810
  Receipt Date: 20060428
  Transmission Date: 20061208
  Serious: Yes (Hospitalization)
  Sender: FDA-Public Use
  Company Number: FR-BAYER-200610423BFR

PATIENT
  Age: 18 Year
  Sex: Male

DRUGS (6)
  1. CIFLOX [Suspect]
     Indication: PSEUDOMONAS INFECTION
     Route: 065
     Dates: start: 20000101, end: 20000101
  2. TARDYFERON [Interacting]
     Indication: ANAEMIA
     Route: 065
     Dates: start: 20000101, end: 20000101
  3. OMEPRAZOLE [Concomitant]
     Indication: UNEVALUABLE EVENT
     Route: 065
  4. NUBAIN [Concomitant]
     Indication: UNEVALUABLE EVENT
     Route: 065
  5. OFLOCET [Concomitant]
     Indication: LOCALISED INFECTION
     Route: 065
     Dates: start: 20000101, end: 20000101
  6. OXACILLIN [Concomitant]
     Indication: LOCALISED INFECTION
     Route: 065
     Dates: start: 20000101, end: 20000101

REACTIONS (2)
  - LEG AMPUTATION [None]
  - OSTEITIS [None]
